FAERS Safety Report 25287835 (Version 2)
Quarter: 2025Q2

REPORT INFORMATION
  Report Type: Spontaneous
  Country: JP (occurrence: JP)
  Receive Date: 20250509
  Receipt Date: 20250523
  Transmission Date: 20250716
  Serious: Yes (Death, Life-Threatening, Hospitalization, Other)
  Sender: PFIZER
  Company Number: JP-PFIZER INC-PV202500053927

PATIENT
  Age: 65 Year
  Sex: Male

DRUGS (5)
  1. BRAFTOVI [Suspect]
     Active Substance: ENCORAFENIB
     Indication: Rectal cancer
     Dosage: 300 MG, 1X/DAY (EVERYDAY)
     Route: 048
  2. CETUXIMAB [Suspect]
     Active Substance: CETUXIMAB
     Indication: Rectal cancer
     Route: 065
  3. CETUXIMAB [Suspect]
     Active Substance: CETUXIMAB
     Dosage: 250 MG/M2, WEEKLY QW
     Route: 065
  4. PREDNISOLONE [Suspect]
     Active Substance: PREDNISOLONE
     Indication: Sarcoidosis
     Dosage: 5 MG, 1X/DAY (EVERYDAY)
     Route: 065
  5. PREDNISOLONE [Suspect]
     Active Substance: PREDNISOLONE
     Indication: Pneumonitis
     Route: 065

REACTIONS (5)
  - Pancreatitis [Fatal]
  - Duodenal ulcer perforation [Fatal]
  - Abdominal abscess [Fatal]
  - Acute respiratory distress syndrome [Fatal]
  - Enterocutaneous fistula [Unknown]
